FAERS Safety Report 10369117 (Version 1)
Quarter: 2014Q3

REPORT INFORMATION
  Report Type: Report from Study
  Country: US (occurrence: US)
  Receive Date: 20140807
  Receipt Date: 20140807
  Transmission Date: 20150326
  Serious: Yes (Hospitalization, Other)
  Sender: FDA-Public Use
  Company Number: PHHY2012US132916

PATIENT
  Sex: Male

DRUGS (37)
  1. ONDANSETRON [Suspect]
     Active Substance: ONDANSETRON
     Indication: NAUSEA
     Dosage: 4 MG,EVERY 6 HRS
     Route: 048
     Dates: start: 20120921
  2. ESCITALOPRAM [Concomitant]
     Active Substance: ESCITALOPRAM OXALATE
     Dosage: 20 MG, UNK
     Route: 048
     Dates: start: 20121029
  3. TRIAMCINOLONE [Concomitant]
     Active Substance: TRIAMCINOLONE
     Dosage: UNK (500 MCG/ACT)
     Route: 045
  4. LEVOCETIRIZINE DIHYDROCHLORIDE. [Concomitant]
     Active Substance: LEVOCETIRIZINE DIHYDROCHLORIDE
     Dosage: 5 MG, DAILY
     Route: 048
  5. RANITIDINE [Concomitant]
     Active Substance: RANITIDINE\RANITIDINE HYDROCHLORIDE
     Dosage: 300 MG, AT BED TIME
     Route: 048
  6. FLUTICASONE [Concomitant]
     Active Substance: FLUTICASONE\FLUTICASONE PROPIONATE
     Dosage: UNK (230 TO 21 MCG/ACT) 2 IN 1 DAY
  7. IPRATROPIUM [Concomitant]
     Active Substance: IPRATROPIUM
     Dosage: UNK UKN, UNK
     Dates: start: 20120814
  8. IPRATROPIUM [Concomitant]
     Active Substance: IPRATROPIUM
     Dosage: UNK (17 MCG/ACT)
     Dates: start: 20121109
  9. PREDNISONE. [Concomitant]
     Active Substance: PREDNISONE
     Dosage: 20 MG, UNK
     Route: 048
     Dates: start: 20121025, end: 20121105
  10. LEVALBUTEROL [Concomitant]
     Active Substance: LEVALBUTEROL
     Dosage: UNK (125 MG/3ML) 1 AMPULE EVERY 2 HRS
     Dates: start: 20121025, end: 20121105
  11. CEFPODOXIME [Concomitant]
     Active Substance: CEFPODOXIME
     Dosage: UNK UKN, UNK
     Dates: start: 20121019, end: 20121105
  12. LORAZEPAM. [Concomitant]
     Active Substance: LORAZEPAM
     Dosage: 0.5 MG, (2 TABLET AT BED TIME 1 TABLET AS NEEDED)
     Route: 048
     Dates: start: 20121029
  13. VANCOMYCIN [Concomitant]
     Active Substance: VANCOMYCIN
     Dosage: 125 MG, QID
     Route: 048
     Dates: start: 20121026
  14. DOCUSATE SODIUM. [Concomitant]
     Active Substance: DOCUSATE SODIUM
     Dosage: 100 MG, 2 IN 1 DAY
     Route: 048
  15. RISEDRONATE [Concomitant]
     Active Substance: RISEDRONATE SODIUM
     Dosage: 35 MG, 1 IN 1 WEEK
     Route: 048
  16. CLOTRIMAZOLE. [Concomitant]
     Active Substance: CLOTRIMAZOLE
     Dosage: 10 MG, 5 IN 1 DAY
     Dates: start: 20120515
  17. OXYCODONE [Concomitant]
     Active Substance: OXYCODONE
     Indication: PAIN
     Dosage: 5 MG, (0.5 TABLET AT EVERY 4 HRS)
     Route: 048
     Dates: start: 20121022
  18. CALCITONIN [Concomitant]
     Active Substance: CALCITONIN
     Dosage: UNK UKN, (200 UNITS/ACT)
     Dates: start: 20120921
  19. ABILIFY [Concomitant]
     Active Substance: ARIPIPRAZOLE
     Dosage: 5 MG, UNK
     Route: 048
     Dates: start: 20121103
  20. BUSPIRONE [Concomitant]
     Active Substance: BUSPIRONE HYDROCHLORIDE
     Dosage: 10 MG, 3 IN 1 DAY
     Route: 048
  21. BECLOMETASONE [Concomitant]
     Active Substance: BECLOMETHASONE DIPROPIONATE
     Dosage: UNK (80 MCG/ACT) 2 IN 1 DAY
     Route: 048
  22. XOLAIR [Suspect]
     Active Substance: OMALIZUMAB
     Indication: ASTHMA
     Dosage: 300 MG, BIW
     Route: 058
  23. IPRATROPIUM [Concomitant]
     Active Substance: IPRATROPIUM
     Dosage: 0.5 MG EVERY 6 HRS
     Dates: start: 20121113
  24. BACTRIM [Concomitant]
     Active Substance: SULFAMETHOXAZOLE\TRIMETHOPRIM
     Dosage: UNK (800 TO 160 MG) 2 IN 1 DAY
     Route: 048
     Dates: start: 20121025, end: 20121108
  25. XYLITOL [Concomitant]
     Active Substance: XYLITOL
     Dosage: 500 MG, 3 IN 1 DAY
     Route: 048
     Dates: start: 20120814
  26. BUDESONIDE. [Concomitant]
     Active Substance: BUDESONIDE
     Dosage: UNK (0.5 MG/2 ML)
  27. TRAMADOL [Concomitant]
     Active Substance: TRAMADOL
     Dosage: 50 MG, UNK
     Route: 048
     Dates: start: 20120619
  28. ACETYLCYSTEINE. [Concomitant]
     Active Substance: ACETYLCYSTEINE
     Dosage: UNK UKN, UNK
     Dates: start: 20121025, end: 20121105
  29. TOBRAMYCIN [Concomitant]
     Active Substance: TOBRAMYCIN
     Dosage: UNK (300 MG/5 ML)
     Dates: start: 20121025, end: 20121105
  30. LANSOPRAZOLE. [Concomitant]
     Active Substance: LANSOPRAZOLE
     Dosage: 30 MG, (2 IN 1 DAY 1 CAPSULE 30 TO 60 MIN BEFORE MEAL)
     Dates: start: 20121106
  31. BUSPIRONE [Concomitant]
     Active Substance: BUSPIRONE HYDROCHLORIDE
     Dosage: 10 MG, TID
     Route: 048
     Dates: start: 20121029
  32. CYCLOBENZAPRINE [Concomitant]
     Active Substance: CYCLOBENZAPRINE
     Dosage: 5 MG, TID
     Route: 048
     Dates: start: 20120619
  33. CYCLOSPORINE. [Concomitant]
     Active Substance: CYCLOSPORINE
     Dosage: 1 DRP, (0.05 %)IN BOTH EYES
     Route: 047
     Dates: start: 20120618
  34. ZILEUTON [Concomitant]
     Active Substance: ZILEUTON
     Dosage: 600 MG, 2 IN 1 DAY
     Route: 048
     Dates: start: 20111021
  35. ARIPIPRAZOLE [Concomitant]
     Active Substance: ARIPIPRAZOLE
     Dosage: 5 MG, DAILY
     Route: 048
     Dates: start: 20120625
  36. VARDENAFIL [Concomitant]
     Active Substance: VARDENAFIL
     Dosage: 20 MG, DAILY
     Route: 048
  37. BRIMONIDINE [Concomitant]
     Active Substance: BRIMONIDINE\BRIMONIDINE TARTRATE
     Dosage: UNK (0.2 TO 0.5% IN BOTH EYES)
     Route: 047

REACTIONS (5)
  - Fatigue [Unknown]
  - Malaise [Unknown]
  - Respiratory failure [Unknown]
  - Asthma [Unknown]
  - Organising pneumonia [Unknown]
